FAERS Safety Report 6743803-0 (Version None)
Quarter: 2010Q2

REPORT INFORMATION
  Report Type: 
  Country: None (occurrence: None)
  Receive Date: 20100527
  Receipt Date: 20100301
  Transmission Date: 20101027
  Serious: No
  Sender: FDA-Public Use
  Company Number: US-KINGPHARMUSA00001-K201000249

PATIENT
  Sex: Female
  Weight: 49.887 kg

DRUGS (2)
  1. FLECTOR [Suspect]
     Indication: ARTHRALGIA
     Dosage: 1 PATCH, EVERY 12 HOURS
     Dates: start: 20100201, end: 20100201
  2. FLECTOR [Suspect]
     Indication: BURSITIS

REACTIONS (1)
  - DRY MOUTH [None]
